FAERS Safety Report 10004796 (Version 2)
Quarter: 2014Q2

REPORT INFORMATION
  Report Type: Report from Study
  Country: IE (occurrence: IE)
  Receive Date: 20140312
  Receipt Date: 20140417
  Transmission Date: 20141212
  Serious: Yes (Hospitalization)
  Sender: FDA-Public Use
  Company Number: IE-GLAXOSMITHKLINE-B0975670A

PATIENT
  Age: 70 Year
  Sex: Female

DRUGS (5)
  1. VOTRIENT [Suspect]
     Indication: OVARIAN CANCER
     Dosage: 800MG PER DAY
     Route: 048
     Dates: start: 20140109
  2. SEVREDOL [Concomitant]
  3. MOTILIUM [Concomitant]
  4. ALPRAZOLAM [Concomitant]
  5. INNOHEP [Concomitant]

REACTIONS (2)
  - Investigation [Recovered/Resolved with Sequelae]
  - Disease progression [Unknown]
